FAERS Safety Report 7404082-4 (Version None)
Quarter: 2011Q2

REPORT INFORMATION
  Report Type: 
  Country: None (occurrence: None)
  Receive Date: 20110408
  Receipt Date: 20110330
  Transmission Date: 20111010
  Serious: Yes (Hospitalization, Other)
  Sender: FDA-Public Use
  Company Number: US-ASTRAZENECA-2010SE31575

PATIENT
  Age: 59 Year
  Sex: Male
  Weight: 98.9 kg

DRUGS (17)
  1. LISINOPRIL [Concomitant]
  2. LORAZEPAM [Concomitant]
  3. AVODART [Concomitant]
  4. FISH OIL [Concomitant]
  5. SEROQUEL [Suspect]
     Indication: BIPOLAR DISORDER
     Route: 048
     Dates: start: 20080101
  6. LEVAMINE [Concomitant]
  7. CRESTOR [Concomitant]
     Route: 048
  8. DETROL LA [Concomitant]
  9. METOPROLOL [Concomitant]
  10. METFORMIN [Concomitant]
  11. CARVEDILOL [Concomitant]
  12. CALCITRIOL [Concomitant]
  13. NOVALOG [Concomitant]
  14. KLONAZEPAM [Concomitant]
  15. GEMFIBROZIL [Concomitant]
  16. ONGLYZA [Concomitant]
     Route: 048
  17. ISOSORBIDE DINITRATE [Concomitant]

REACTIONS (7)
  - INTERVERTEBRAL DISC PROTRUSION [None]
  - WEIGHT DECREASED [None]
  - BLOOD GLUCOSE INCREASED [None]
  - CARDIAC DISORDER [None]
  - RENAL FAILURE [None]
  - FISTULA [None]
  - PAIN [None]
